FAERS Safety Report 24584202 (Version 1)
Quarter: 2024Q4

REPORT INFORMATION
  Report Type: Spontaneous
  Country: US (occurrence: None)
  Receive Date: 20241105
  Receipt Date: 20241105
  Transmission Date: 20250115
  Serious: Yes (Hospitalization)
  Sender: Public
  Company Number: None

PATIENT
  Age: 54 Year
  Sex: Female

DRUGS (3)
  1. CLOZAPINE [Suspect]
     Active Substance: CLOZAPINE
     Indication: Bipolar disorder
     Dates: start: 20240529, end: 20240617
  2. OLANZAPINE [Suspect]
     Active Substance: OLANZAPINE
  3. Divalproex Sodium DR 2500mg qhs [Concomitant]

REACTIONS (13)
  - Mania [None]
  - Troponin increased [None]
  - C-reactive protein increased [None]
  - Myocarditis [None]
  - Pericardial effusion [None]
  - Lipase increased [None]
  - Pancreatitis [None]
  - Supraventricular tachycardia [None]
  - Atrial fibrillation [None]
  - Cardiac tamponade [None]
  - Pericarditis constrictive [None]
  - Product substitution issue [None]
  - Therapeutic response changed [None]

NARRATIVE: CASE EVENT DATE: 20240617
